FAERS Safety Report 21707099 (Version 2)
Quarter: 2022Q4

REPORT INFORMATION
  Report Type: Spontaneous
  Country: US (occurrence: US)
  Receive Date: 20221209
  Receipt Date: 20221212
  Transmission Date: 20230113
  Serious: Yes (Hospitalization, Other)
  Sender: FDA-Public Use
  Company Number: US-BRISTOL-MYERS SQUIBB COMPANY-2022-148379

PATIENT
  Age: 85 Year
  Sex: Female

DRUGS (1)
  1. REVLIMID [Suspect]
     Active Substance: LENALIDOMIDE
     Indication: Refractory anaemia with ringed sideroblasts
     Route: 048
     Dates: start: 20221103

REACTIONS (3)
  - Mitral valve disease [Unknown]
  - Pulmonary oedema [Unknown]
  - Off label use [Unknown]
